FAERS Safety Report 18907115 (Version 1)
Quarter: 2021Q1

REPORT INFORMATION
  Report Type: Spontaneous
  Country: PT (occurrence: PT)
  Receive Date: 20210218
  Receipt Date: 20210218
  Transmission Date: 20210420
  Serious: Yes (Other)
  Sender: FDA-Public Use
  Company Number: PT-TEVA-2021-PT-1879317

PATIENT
  Age: 70 Year
  Sex: Male

DRUGS (3)
  1. LINEZOLID. [Suspect]
     Active Substance: LINEZOLID
     Indication: RHODOCOCCUS INFECTION
     Route: 065
     Dates: start: 2018, end: 201807
  2. ERTAPENEM. [Concomitant]
     Active Substance: ERTAPENEM SODIUM
     Indication: RHODOCOCCUS INFECTION
     Route: 065
  3. GENTAMYCIN [Suspect]
     Active Substance: GENTAMICIN
     Indication: RHODOCOCCUS INFECTION
     Route: 065
     Dates: start: 2018, end: 201901

REACTIONS (3)
  - Nephropathy toxic [Unknown]
  - Myelosuppression [Unknown]
  - Ototoxicity [Unknown]
